FAERS Safety Report 4673198-8 (Version None)
Quarter: 2005Q2

REPORT INFORMATION
  Report Type: 
  Country: None (occurrence: None)
  Receive Date: 20050525
  Receipt Date: 20040604
  Transmission Date: 20051028
  Serious: No
  Sender: FDA-Public Use
  Company Number: US-GLAXOSMITHKLINE-A0514414A

PATIENT
  Age: 83 Year
  Sex: Female

DRUGS (1)
  1. BACTROBAN [Suspect]
     Indication: RASH
     Dosage: 2PCT UNKNOWN
     Route: 061
     Dates: start: 20040516

REACTIONS (2)
  - PAIN [None]
  - RASH [None]
